FAERS Safety Report 6517604-2 (Version None)
Quarter: 2009Q4

REPORT INFORMATION
  Report Type: 
  Country: None (occurrence: None)
  Receive Date: 20091224
  Receipt Date: 20091214
  Transmission Date: 20100525
  Serious: Yes (Hospitalization)
  Sender: FDA-Public Use
  Company Number: PHHY2009CA55584

PATIENT
  Sex: Male

DRUGS (2)
  1. DIOVAN [Suspect]
     Dosage: 160 MG, UNK
  2. ADALAT CC [Concomitant]
     Dosage: UNK

REACTIONS (1)
  - ATRIAL FIBRILLATION [None]
